FAERS Safety Report 25202107 (Version 1)
Quarter: 2025Q2

REPORT INFORMATION
  Report Type: Spontaneous
  Country: US (occurrence: US)
  Receive Date: 20250416
  Receipt Date: 20250416
  Transmission Date: 20250716
  Serious: No
  Sender: SUNOVION
  Company Number: US-SMPA-2025SPA003361AA

PATIENT

DRUGS (1)
  1. ORGOVYX [Suspect]
     Active Substance: RELUGOLIX
     Indication: Prostate cancer
     Dosage: 120 MG, QD (TAKE ONE TABLET (120 MG) BY MOUTH ONCE DAILY AROUND THE SAME TIME EACH DAY.)
     Route: 048

REACTIONS (3)
  - Dyspnoea exertional [Unknown]
  - Fatigue [Unknown]
  - Red blood cell count decreased [Unknown]
